FAERS Safety Report 7277920-6 (Version None)
Quarter: 2011Q1

REPORT INFORMATION
  Report Type: 
  Country: None (occurrence: None)
  Receive Date: 20110207
  Receipt Date: 20110127
  Transmission Date: 20110831
  Serious: Yes (Death)
  Sender: FDA-Public Use
  Company Number: JP-ROCHE-753022

PATIENT
  Sex: Female
  Weight: 62.1 kg

DRUGS (10)
  1. VOLTAREN [Concomitant]
     Dosage: DRUG: DICLOFENAC SODIUM, FREQUENCY: PER DAY
     Route: 048
     Dates: start: 20101027, end: 20101210
  2. OXYCONTIN [Concomitant]
     Dosage: DRUG: OXYCODONE HYDROCHLORIDE, SUSTAINED-RELEASE TABLET
     Route: 048
     Dates: start: 20101027, end: 20101210
  3. MAGMITT [Concomitant]
     Route: 048
     Dates: start: 20101027, end: 20101210
  4. AVASTIN [Suspect]
     Indication: COLON CANCER METASTATIC
     Route: 041
     Dates: start: 20101027, end: 20101210
  5. PARIET [Concomitant]
     Dosage: DRUG: SODIUM RABEPRAZOLE, FREQUENCY: PER DAY
     Route: 048
     Dates: start: 20101027, end: 20101210
  6. GASMOTIN [Concomitant]
     Dosage: DRUG: MOSAPRIDE CITRATE
     Route: 048
     Dates: start: 20101027, end: 20101210
  7. XELODA [Suspect]
     Indication: COLON CANCER METASTATIC
     Dosage: DRUG: XELODA 300
     Route: 048
     Dates: start: 20101027, end: 20101210
  8. PYDOXAL [Concomitant]
     Route: 048
     Dates: start: 20101027, end: 20101210
  9. BETAMETHASONE [Concomitant]
     Dosage: FREQUENCY: PER DAY
     Route: 048
     Dates: start: 20101027, end: 20101210
  10. FERROUS CITRATE [Concomitant]
     Route: 048
     Dates: start: 20101027, end: 20101210

REACTIONS (2)
  - ABDOMINAL PAIN [None]
  - CARDIO-RESPIRATORY ARREST [None]
